FAERS Safety Report 22157518 (Version 17)
Quarter: 2024Q4

REPORT INFORMATION
  Report Type: Spontaneous
  Country: CA (occurrence: CA)
  Receive Date: 20230330
  Receipt Date: 20241230
  Transmission Date: 20250115
  Serious: Yes (Hospitalization, Other)
  Sender: PFIZER
  Company Number: CA-PFIZER INC-202300133366

PATIENT
  Age: 20 Year
  Sex: Female

DRUGS (2)
  1. ABRILADA [Suspect]
     Active Substance: ADALIMUMAB-AFZB
     Indication: Hidradenitis
     Dosage: 40 MG, WEEKLY, INDUCTION 160MG WEEK 0 , 80MG WEEK 2 THEN 40MG STARTING WEEK 4
     Route: 058
     Dates: start: 20230220
  2. PREDNISONE [Concomitant]
     Active Substance: PREDNISONE
     Dosage: UNK

REACTIONS (28)
  - Epstein-Barr virus infection [Not Recovered/Not Resolved]
  - Abdominal pain [Not Recovered/Not Resolved]
  - Vomiting [Not Recovered/Not Resolved]
  - Tachycardia [Not Recovered/Not Resolved]
  - Gastrointestinal haemorrhage [Not Recovered/Not Resolved]
  - Immunodeficiency [Not Recovered/Not Resolved]
  - Infection [Unknown]
  - Clostridium difficile infection [Not Recovered/Not Resolved]
  - Crohn^s disease [Unknown]
  - Skin infection [Recovered/Resolved]
  - Ear infection [Recovered/Resolved]
  - Sinusitis [Recovered/Resolved]
  - Lower respiratory tract infection [Recovered/Resolved]
  - Facial operation [Unknown]
  - Post procedural complication [Unknown]
  - Autoimmune disorder [Not Recovered/Not Resolved]
  - Colitis ulcerative [Unknown]
  - Inflammatory bowel disease [Unknown]
  - Diarrhoea [Not Recovered/Not Resolved]
  - Viral infection [Recovering/Resolving]
  - Condition aggravated [Unknown]
  - Hypersensitivity [Unknown]
  - Bone marrow disorder [Not Recovered/Not Resolved]
  - Candida infection [Unknown]
  - Joint swelling [Not Recovered/Not Resolved]
  - Arthralgia [Not Recovered/Not Resolved]
  - Arthritis [Not Recovered/Not Resolved]
  - Nasal ulcer [Not Recovered/Not Resolved]

NARRATIVE: CASE EVENT DATE: 20230101
